FAERS Safety Report 4360248-1 (Version None)
Quarter: 2004Q2

REPORT INFORMATION
  Report Type: 
  Country: None (occurrence: None)
  Receive Date: 20040518
  Receipt Date: 20040518
  Transmission Date: 20050107
  Serious: No
  Sender: FDA-Public Use
  Company Number: None

PATIENT
  Age: 77 Year
  Sex: Female
  Weight: 77.1 kg

DRUGS (15)
  1. PROPOXYPHENE NAPSYLATE AND ACETAMINOPHEN [Suspect]
     Indication: PAIN
     Dosage: 1-2 TAB Q 4H PRN
     Dates: start: 20040108, end: 20040110
  2. ASPIRIN [Concomitant]
  3. BISACODYL [Concomitant]
  4. CLOPIDOGREL BISULFATE [Concomitant]
  5. DOPAMINE HCL [Concomitant]
  6. ESTROGEN [Concomitant]
  7. FAMOTODINE [Concomitant]
  8. MAGNESIUM SULFATE [Concomitant]
  9. METOCLOPROMIDE [Concomitant]
  10. METOPROLOL [Concomitant]
  11. M.V.I. [Concomitant]
  12. NYSTATIN [Concomitant]
  13. ODANSETRON [Concomitant]
  14. SENNA/DOCUSATE [Concomitant]
  15. SIMVASTATIN [Concomitant]

REACTIONS (1)
  - RESPIRATORY RATE DECREASED [None]
